FAERS Safety Report 5637499-9 (Version None)
Quarter: 2008Q1

REPORT INFORMATION
  Report Type: 
  Country: None (occurrence: None)
  Receive Date: 20080225
  Receipt Date: 20080213
  Transmission Date: 20080703
  Serious: Yes (Other)
  Sender: FDA-Public Use
  Company Number: MX-PFIZER INC-2008014563

PATIENT
  Sex: Female
  Weight: 54.5 kg

DRUGS (1)
  1. CHANTIX [Suspect]
     Indication: SMOKING CESSATION THERAPY
     Route: 048
     Dates: start: 20071004, end: 20080128

REACTIONS (3)
  - DIZZINESS [None]
  - LABYRINTHITIS [None]
  - VERTIGO [None]
